FAERS Safety Report 8971943 (Version 2)
Quarter: 2012Q4

REPORT INFORMATION
  Report Type: 
  Country: IL (occurrence: IL)
  Receive Date: 20121218
  Receipt Date: 20121220
  Transmission Date: 20130627
  Serious: Yes (Disabling, Other)
  Sender: FDA-Public Use
  Company Number: PHHY2012IL115809

PATIENT
  Age: 44 Year
  Sex: Male

DRUGS (6)
  1. CARBIDOPA, LEVODOPA [Suspect]
     Indication: PARKINSON^S DISEASE
     Dosage: 1/4 of a tablet daily
  2. ROPINIROLE [Suspect]
     Indication: PARKINSON^S DISEASE
     Dosage: 12 mg, QD
  3. ROPINIROLE [Suspect]
     Dosage: 20 mg, QD
  4. ROPINIROLE [Suspect]
     Dosage: 1 mg, QID
  5. SINEMET CR [Suspect]
     Indication: PARKINSON^S DISEASE
     Dosage: 4 DF, QD
  6. LEVODOPA [Suspect]
     Indication: PARKINSON^S DISEASE

REACTIONS (11)
  - Compulsive sexual behaviour [Recovered/Resolved]
  - Dopamine dysregulation syndrome [Recovered/Resolved]
  - Parkinson^s disease [Recovered/Resolved]
  - Dyskinesia [Recovered/Resolved]
  - Hypersexuality [Recovered/Resolved]
  - Gait disturbance [Recovered/Resolved]
  - Motor dysfunction [Recovered/Resolved]
  - Dysphoria [Recovered/Resolved]
  - Suicidal ideation [Recovered/Resolved]
  - Dystonia [Recovered/Resolved]
  - Pain [Recovered/Resolved]
